FAERS Safety Report 4851920-5 (Version None)
Quarter: 2005Q4

REPORT INFORMATION
  Report Type: 
  Country: None (occurrence: None)
  Receive Date: 20051209
  Receipt Date: 20050606
  Transmission Date: 20060501
  Serious: Yes (Death)
  Sender: FDA-Public Use
  Company Number: 2005S1000682

PATIENT
  Age: 4 Year
  Sex: Male

DRUGS (17)
  1. INOMAX [Suspect]
     Indication: VASODILATION PROCEDURE
     Dosage: 80 PPM; CONT   INH
     Route: 055
     Dates: start: 20050603, end: 20050603
  2. SEVOFLURANE [Concomitant]
  3. MIDAZOLAM HCL [Concomitant]
  4. FENTANYL [Concomitant]
  5. ESMERON (ROCURONIUM BROMIDE) [Concomitant]
  6. ATROPINE [Concomitant]
  7. DOBUTAMINE (DOBUTAMINE) [Concomitant]
  8. MILRINONE (MILRINONE) [Concomitant]
  9. DOPAMINE HCL [Concomitant]
  10. VECURONIUM (VECURONIUM) [Concomitant]
  11. EPINEPHRINE [Concomitant]
  12. SILDENAFIL CITRATE [Concomitant]
  13. FENTANYL [Concomitant]
  14. CEFTAZIDIME SODIUM [Concomitant]
  15. TEICOPLANINE [Concomitant]
  16. FUROSEMIDE [Concomitant]
  17. NITRIC OXIDE (NITRIC OXIDE) [Concomitant]

REACTIONS (26)
  - ACCIDENT [None]
  - BLOOD CALCIUM DECREASED [None]
  - BLOOD GASES ABNORMAL [None]
  - BLOOD GLUCOSE INCREASED [None]
  - BLOOD LACTIC ACID INCREASED [None]
  - BLOOD MAGNESIUM INCREASED [None]
  - BLOOD PH DECREASED [None]
  - BLOOD SODIUM DECREASED [None]
  - BLOOD UREA INCREASED [None]
  - BRADYCARDIA [None]
  - CARDIAC ARREST [None]
  - DILATATION VENTRICULAR [None]
  - GENERAL PHYSICAL HEALTH DETERIORATION [None]
  - HAEMODYNAMIC INSTABILITY [None]
  - HAEMOGLOBIN DECREASED [None]
  - HYPOXIA [None]
  - INTERNATIONAL NORMALISED RATIO INCREASED [None]
  - MEDICAL DEVICE COMPLICATION [None]
  - PROCEDURAL COMPLICATION [None]
  - PROCEDURAL HYPOTENSION [None]
  - PULMONARY HYPERTENSION [None]
  - RIGHT VENTRICULAR FAILURE [None]
  - TRICUSPID VALVE INCOMPETENCE [None]
  - VASCULAR PROCEDURE COMPLICATION [None]
  - VENTRICULAR FIBRILLATION [None]
  - VENTRICULAR SEPTAL DEFECT [None]
